FAERS Safety Report 9409828 (Version 1)
Quarter: 2013Q3

REPORT INFORMATION
  Report Type: Spontaneous
  Country: FR (occurrence: FR)
  Receive Date: 20130719
  Receipt Date: 20130719
  Transmission Date: 20140515
  Serious: Yes (Death, Other)
  Sender: FDA-Public Use
  Company Number: FR-PFIZER INC-2013208089

PATIENT
  Age: 65 Year
  Sex: Male

DRUGS (3)
  1. FLUOROURACILE PFIZER [Suspect]
     Indication: SQUAMOUS CELL CARCINOMA
     Dosage: 5960 MG ON 96 HOURS
     Route: 042
     Dates: start: 20130617, end: 20130620
  2. TAXOTERE [Suspect]
     Indication: SQUAMOUS CELL CARCINOMA
     Dosage: 110 MG ON 1 HOUR
     Route: 042
     Dates: start: 20130617, end: 20130617
  3. CISPLATIN MYLAN [Suspect]
     Indication: SQUAMOUS CELL CARCINOMA
     Dosage: 110 MG ON 01:30 HOURS
     Route: 042
     Dates: start: 20130617, end: 20130617

REACTIONS (19)
  - Diarrhoea [Fatal]
  - Haematotoxicity [Fatal]
  - Gastrointestinal haemorrhage [Unknown]
  - Renal failure acute [Unknown]
  - Neutrophil count decreased [None]
  - Blood potassium decreased [None]
  - Altered state of consciousness [None]
  - Faeces discoloured [None]
  - Body temperature increased [None]
  - Blood pressure decreased [None]
  - Livedo reticularis [None]
  - Tachycardia [None]
  - Tachypnoea [None]
  - Dehydration [None]
  - Respiratory distress [None]
  - Cyanosis [None]
  - Rales [None]
  - Metabolic acidosis [None]
  - Prothrombin time prolonged [None]
